FAERS Safety Report 6779322-5 (Version None)
Quarter: 2010Q2

REPORT INFORMATION
  Report Type: 
  Country: None (occurrence: None)
  Receive Date: 20100618
  Receipt Date: 20100607
  Transmission Date: 20101027
  Serious: Yes (Other)
  Sender: FDA-Public Use
  Company Number: PHHY2010AU34840

PATIENT
  Sex: Female

DRUGS (12)
  1. CLOZARIL [Suspect]
     Dosage: 225 MG, QD
     Dates: start: 20021204
  2. EFFEXOR [Concomitant]
     Dosage: 150 MG, BID
  3. MIXTARD HUMAN 70/30 [Concomitant]
     Indication: DIABETES MELLITUS
     Dosage: 30/70 MANE
     Route: 058
  4. OXYBUTYNIN CHLORIDE [Concomitant]
     Dosage: 5 MG, NOCTE
  5. RANITIDINE [Concomitant]
     Indication: CARDIAC DISORDER
     Dosage: 150 MG, BID
  6. FEFOL [Concomitant]
     Dosage: 1 /DAY, MANE
  7. METFORMIN HCL [Concomitant]
     Indication: DIABETES MELLITUS
     Dosage: 500 MG, BID
  8. JEZIL [Concomitant]
     Dosage: 600 MG, NOCTE
  9. THIAMINE HCL [Concomitant]
  10. MOBIC [Concomitant]
     Dosage: 1 DF, NOCTE
  11. ACETAMINOPHEN [Concomitant]
     Dosage: 1 DF, NOCTE
  12. MINIPRESS [Concomitant]
     Indication: HYPERTENSION
     Dosage: 1 MG, BID

REACTIONS (6)
  - CARDIAC DISORDER [None]
  - CARDIAC FAILURE [None]
  - ELECTROCARDIOGRAM QT PROLONGED [None]
  - ELECTROCARDIOGRAM ST-T CHANGE [None]
  - LEFT VENTRICULAR HYPERTROPHY [None]
  - SINUS ARRHYTHMIA [None]
